FAERS Safety Report 7374743-4 (Version None)
Quarter: 2011Q1

REPORT INFORMATION
  Report Type: 
  Country: None (occurrence: None)
  Receive Date: 20110325
  Receipt Date: 20101018
  Transmission Date: 20110831
  Serious: Yes (Other)
  Sender: FDA-Public Use
  Company Number: US-MYLANLABS-2010S1017811

PATIENT
  Age: 71 Year
  Sex: Male

DRUGS (12)
  1. FENTANYL-100 [Suspect]
     Indication: NECK PAIN
     Dosage: CHANGED Q72H
     Route: 062
     Dates: start: 20100922, end: 20100924
  2. PREDNISONE [Concomitant]
     Dosage: WITH FOOD
  3. LANSOPRAZOLE [Concomitant]
  4. LISINOPRIL [Concomitant]
     Dosage: 10/12.5MG
  5. FENTANYL-100 [Suspect]
     Indication: BONE PAIN
     Dosage: CHANGED Q72H
     Route: 062
     Dates: start: 20100922, end: 20100924
  6. FLUTICASONE PROPIONATE [Concomitant]
     Route: 045
  7. FENTANYL-100 [Suspect]
     Indication: CHEST PAIN
     Dosage: CHANGED Q72H
     Route: 062
     Dates: start: 20100922, end: 20100924
  8. AMLODIPINE BESYLATE [Concomitant]
  9. VITAMIN TAB [Concomitant]
  10. FENTANYL-100 [Suspect]
     Indication: PAIN
     Dosage: CHANGED Q72H
     Route: 062
     Dates: start: 20100922, end: 20100924
  11. NORCO [Concomitant]
     Dosage: 10/325MG STRENGTH, USES 3-4/DAY
  12. BENEFIBER /01648102/ [Concomitant]
     Dosage: ONCE OR TWICE DAILY

REACTIONS (2)
  - DYSURIA [None]
  - URINARY RETENTION [None]
